FAERS Safety Report 24584956 (Version 3)
Quarter: 2025Q2

REPORT INFORMATION
  Report Type: Report from Study
  Country: US (occurrence: US)
  Receive Date: 20241106
  Receipt Date: 20250410
  Transmission Date: 20250717
  Serious: Yes (Other)
  Sender: NOVARTIS
  Company Number: US-002147023-NVSC2024US214432

PATIENT
  Age: 75 Year
  Sex: Female

DRUGS (3)
  1. LEQVIO [Suspect]
     Active Substance: INCLISIRAN SODIUM
     Indication: Product used for unknown indication
     Route: 058
     Dates: start: 20240801, end: 20240801
  2. LEQVIO [Suspect]
     Active Substance: INCLISIRAN SODIUM
     Route: 058
     Dates: start: 20241101, end: 20241101
  3. LEQVIO [Suspect]
     Active Substance: INCLISIRAN SODIUM
     Route: 058
     Dates: start: 20241104, end: 20241104

REACTIONS (12)
  - Idiopathic pulmonary fibrosis [Unknown]
  - Total lung capacity decreased [Unknown]
  - Dyspnoea exertional [Unknown]
  - Myocardial infarction [Unknown]
  - Pulmonary mass [Unknown]
  - Decreased activity [Unknown]
  - Amnesia [Unknown]
  - Bone density decreased [Unknown]
  - Arthralgia [Unknown]
  - Body height decreased [Unknown]
  - Dyspnoea [Unknown]
  - Oxygen saturation decreased [Unknown]

NARRATIVE: CASE EVENT DATE: 20240801
